FAERS Safety Report 11403493 (Version 1)
Quarter: 2015Q3

REPORT INFORMATION
  Report Type: Spontaneous
  Country: BR (occurrence: BR)
  Receive Date: 20150821
  Receipt Date: 20150821
  Transmission Date: 20151125
  Serious: Yes (Other)
  Sender: FDA-Public Use
  Company Number: BR-ASTRAZENECA-2015SE79777

PATIENT
  Age: 66 Year
  Sex: Male
  Weight: 66 kg

DRUGS (9)
  1. SELOZOK [Suspect]
     Active Substance: METOPROLOL SUCCINATE
     Indication: HYPERTENSION
     Route: 048
     Dates: start: 2012
  2. METFORMIN [Suspect]
     Active Substance: METFORMIN HYDROCHLORIDE
     Indication: DIABETES MELLITUS
     Dosage: NON AZ, DAILY
     Route: 048
     Dates: start: 201502
  3. BRILINTA [Suspect]
     Active Substance: TICAGRELOR
     Indication: CARDIAC DISORDER
     Route: 048
     Dates: start: 2012
  4. ASPIRINA PREVENT [Concomitant]
     Active Substance: ASPIRIN
     Dosage: DAILY
     Route: 048
  5. INDAPEN SR [Concomitant]
     Active Substance: INDAPAMIDE
     Dosage: DAILY
     Route: 048
  6. MANIVASC [Concomitant]
     Active Substance: MANIDIPINE HYDROCHLORIDE
     Route: 048
  7. JANUMET [Suspect]
     Active Substance: METFORMIN HYDROCHLORIDE\SITAGLIPTIN PHOSPHATE
     Indication: DIABETES MELLITUS
     Dosage: EVERY DAY
     Route: 048
     Dates: start: 201502
  8. BENICAR HCT [Suspect]
     Active Substance: HYDROCHLOROTHIAZIDE\OLMESARTAN MEDOXOMIL
     Indication: HYPERTENSION
     Dosage: 40/12.5MG, DAILY
     Route: 048
     Dates: start: 2012
  9. SINVASCOR [Concomitant]
     Active Substance: SIMVASTATIN
     Dosage: DAILY
     Route: 048

REACTIONS (2)
  - Diabetes mellitus [Not Recovered/Not Resolved]
  - Off label use [Not Recovered/Not Resolved]

NARRATIVE: CASE EVENT DATE: 2012
